FAERS Safety Report 9324317 (Version 2)
Quarter: 2013Q2

REPORT INFORMATION
  Report Type: Spontaneous
  Country: PL (occurrence: PL)
  Receive Date: 20130603
  Receipt Date: 20130614
  Transmission Date: 20140414
  Serious: Yes (Other)
  Sender: FDA-Public Use
  Company Number: PL-PFIZER INC-2013163866

PATIENT
  Age: 73 Year
  Sex: Male

DRUGS (3)
  1. DALACIN C [Suspect]
     Indication: OSTEITIS
     Dosage: 900 MG PER 24H
  2. DALACIN C [Suspect]
     Dosage: 600 MG PER 24H
  3. DALACIN C [Suspect]
     Dosage: 300 MG PER 24H

REACTIONS (2)
  - Off label use [Unknown]
  - Eye disorder [Unknown]
